FAERS Safety Report 6582421-4 (Version None)
Quarter: 2010Q1

REPORT INFORMATION
  Report Type: 
  Country: None (occurrence: None)
  Receive Date: 20100216
  Receipt Date: 20100202
  Transmission Date: 20100710
  Serious: Yes (Hospitalization)
  Sender: FDA-Public Use
  Company Number: PHHY2010IT06865

PATIENT

DRUGS (4)
  1. VOLTFAST [Suspect]
     Indication: ARTHRALGIA
     Dosage: 50 MG DAILY
     Route: 048
     Dates: start: 20091120, end: 20091120
  2. KARVEA [Concomitant]
     Indication: ESSENTIAL HYPERTENSION
     Dosage: 150 MG
     Route: 048
  3. EUTIROX [Concomitant]
     Indication: HYPOTHYROIDISM
     Dosage: 50 MG, 1 POSOLOGICLA UNIT
     Route: 048
  4. REMICADE [Concomitant]
     Indication: SPONDYLITIS
     Dosage: 400 MG
     Route: 042

REACTIONS (6)
  - CLONUS [None]
  - ERYTHEMA [None]
  - HYPOTENSION [None]
  - OXYGEN SATURATION DECREASED [None]
  - SYNCOPE [None]
  - TRAUMATIC BRAIN INJURY [None]
